FAERS Safety Report 12659601 (Version 2)
Quarter: 2016Q3

REPORT INFORMATION
  Report Type: Spontaneous
  Country: FR (occurrence: FR)
  Receive Date: 20160817
  Receipt Date: 20160822
  Transmission Date: 20161109
  Serious: Yes (Hospitalization)
  Sender: FDA-Public Use
  Company Number: FR-PFIZER INC-2016378741

PATIENT
  Age: 73 Year
  Sex: Female

DRUGS (10)
  1. APROVEL [Suspect]
     Active Substance: IRBESARTAN
     Dosage: 75 MG, 1X/DAY (EVENING)
  2. CERIS [Concomitant]
     Active Substance: TROSPIUM CHLORIDE
     Dosage: 20 MG, 1X/DAY (AT NOON)
  3. DIFFU-K [Suspect]
     Active Substance: POTASSIUM CHLORIDE
     Dosage: 1 DF, 1X/DAY AT NOON
     Route: 048
  4. LEXOMIL [Suspect]
     Active Substance: BROMAZEPAM
     Dosage: 0.5 DF, 1X/DAY (EVENING)
  5. AMLOR [Suspect]
     Active Substance: AMLODIPINE BESYLATE
     Dosage: 5 MG, 2X/DAY
  6. XARELTO [Suspect]
     Active Substance: RIVAROXABAN
     Dosage: 20 MG, 1X/DAY (AT NOON)
     Route: 048
  7. LASILIX /00032601/ [Concomitant]
     Active Substance: FUROSEMIDE
     Dosage: 20 MG, 1X/DAY (AT NOON)
  8. DISCOTRINE [Suspect]
     Active Substance: NITROGLYCERIN
     Dosage: 1 DF, DAILY
     Route: 062
  9. DEROXAT [Concomitant]
     Active Substance: PAROXETINE HYDROCHLORIDE
     Dosage: 20 MG, 1X/DAY (IN THE MORNING)
     Route: 048
  10. IMOVANE [Suspect]
     Active Substance: ZOPICLONE
     Dosage: 7.5 MG, 1X/DAY (EVENING)
     Route: 048

REACTIONS (1)
  - Subdural haematoma [Recovered/Resolved]

NARRATIVE: CASE EVENT DATE: 20160114
